FAERS Safety Report 12442639 (Version 1)
Quarter: 2016Q2

REPORT INFORMATION
  Report Type: Spontaneous
  Country: US (occurrence: None)
  Receive Date: 20160606
  Receipt Date: 20160606
  Transmission Date: 20160815
  Serious: Yes (Life-Threatening)
  Sender: FDA-Public Use
  Company Number: None

PATIENT
  Age: 54 Year
  Sex: Female
  Weight: 68.04 kg

DRUGS (2)
  1. ANCEF [Suspect]
     Active Substance: CEFAZOLIN SODIUM
  2. MVI [Concomitant]
     Active Substance: VITAMINS

REACTIONS (6)
  - Restlessness [None]
  - Heart rate decreased [None]
  - Vision blurred [None]
  - Hyperhidrosis [None]
  - Blood pressure decreased [None]
  - Feeling abnormal [None]

NARRATIVE: CASE EVENT DATE: 20160512
